FAERS Safety Report 6252081-0 (Version None)
Quarter: 2009Q2

REPORT INFORMATION
  Report Type: 
  Country: None (occurrence: None)
  Receive Date: 20090630
  Receipt Date: 20061201
  Transmission Date: 20091009
  Serious: Yes (Death, Hospitalization)
  Sender: FDA-Public Use
  Company Number: US-ROCHE-638847

PATIENT
  Sex: Male

DRUGS (6)
  1. ENFUVIRTIDE [Suspect]
     Route: 065
     Dates: start: 20041228, end: 20061218
  2. NORVIR [Concomitant]
     Dates: end: 20061218
  3. REYATAZ [Concomitant]
     Dates: end: 20061218
  4. VIDEX EC [Concomitant]
     Dates: end: 20061218
  5. VIREAD [Concomitant]
     Dates: end: 20061218
  6. DAPSONE [Concomitant]
     Dates: end: 20061218

REACTIONS (1)
  - DEATH [None]
